FAERS Safety Report 20369185 (Version 1)
Quarter: 2022Q1

REPORT INFORMATION
  Report Type: Spontaneous
  Country: US (occurrence: None)
  Receive Date: 20220121
  Receipt Date: 20220121
  Transmission Date: 20220423
  Serious: No
  Sender: FDA-Public Use
  Company Number: None

PATIENT
  Age: 32 Year
  Sex: Male
  Weight: 75 kg

DRUGS (1)
  1. SOTROVIMAB [Suspect]
     Active Substance: SOTROVIMAB
     Indication: COVID-19
     Dosage: FREQUENCY : ONCE;?
     Route: 040
     Dates: start: 20211227, end: 20211227

REACTIONS (6)
  - Incorrect dose administered by device [None]
  - Cough [None]
  - Oropharyngeal pain [None]
  - Pain [None]
  - Headache [None]
  - Costochondritis [None]

NARRATIVE: CASE EVENT DATE: 20211227
